FAERS Safety Report 6979628-0 (Version None)
Quarter: 2010Q3

REPORT INFORMATION
  Report Type: 
  Country: None (occurrence: None)
  Receive Date: 20100910
  Receipt Date: 20100910
  Transmission Date: 20110219
  Serious: Yes (Other)
  Sender: FDA-Public Use
  Company Number: None

PATIENT
  Age: 15 Year
  Sex: Female
  Weight: 54.4316 kg

DRUGS (1)
  1. DORXY 150MG WARNER CHILCOT [Suspect]
     Indication: ACNE
     Dosage: 150 MG ONCE PER DAY PO
     Route: 048
     Dates: start: 20100315, end: 20100615

REACTIONS (4)
  - PALLOR [None]
  - PHOTOSENSITIVITY REACTION [None]
  - PIGMENTATION DISORDER [None]
  - SUNBURN [None]
